FAERS Safety Report 4360240-7 (Version None)
Quarter: 2004Q2

REPORT INFORMATION
  Report Type: 
  Country: None (occurrence: None)
  Receive Date: 20040518
  Receipt Date: 20040518
  Transmission Date: 20050107
  Serious: Yes (Hospitalization)
  Sender: FDA-Public Use
  Company Number: None

PATIENT
  Age: 56 Year
  Sex: Male

DRUGS (10)
  1. HUMULIN 70/30 [Suspect]
     Dosage: 35 UNITS Q AM, 7 UNITS Q PM
  2. FUROSEMIDE [Concomitant]
  3. SPIRONOLACTONE [Concomitant]
  4. LISINOPRIL [Concomitant]
  5. ASPIRIN [Concomitant]
  6. LEVOFLOXACIN [Concomitant]
  7. ATENOLOL ABACAVIR [Concomitant]
  8. LAMIVUDINE [Concomitant]
  9. EFAVIRENZ [Concomitant]
  10. CARVEDILOL [Concomitant]

REACTIONS (4)
  - DIARRHOEA HAEMORRHAGIC [None]
  - HYPERGLYCAEMIA [None]
  - SKIN ULCER [None]
  - TREATMENT NONCOMPLIANCE [None]
